FAERS Safety Report 23331375 (Version 1)
Quarter: 2023Q4

REPORT INFORMATION
  Report Type: Spontaneous
  Country: US (occurrence: None)
  Receive Date: 20231221
  Receipt Date: 20231221
  Transmission Date: 20240110
  Serious: Yes (Hospitalization)
  Sender: FDA-Public Use
  Company Number: None

PATIENT
  Sex: Male

DRUGS (3)
  1. TADALAFIL [Suspect]
     Active Substance: TADALAFIL
     Indication: Pulmonary arterial hypertension
     Dosage: FREQUENCY : DAILY;?
     Route: 048
     Dates: start: 202307
  2. OPSUMIT [Concomitant]
     Active Substance: MACITENTAN
  3. REMODULIN [Concomitant]

REACTIONS (3)
  - Hip arthroplasty [None]
  - Pain in jaw [None]
  - Sinus headache [None]

NARRATIVE: CASE EVENT DATE: 20231211
